FAERS Safety Report 15504827 (Version 1)
Quarter: 2018Q4

REPORT INFORMATION
  Report Type: Spontaneous
  Country: US (occurrence: US)
  Receive Date: 20181009
  Receipt Date: 20181009
  Transmission Date: 20190205
  Serious: Yes (Life-Threatening, Hospitalization, Disabling, Other)
  Sender: FDA-Public Use
  Company Number: None

PATIENT
  Age: 18 Year
  Sex: Female
  Weight: 41.85 kg

DRUGS (6)
  1. LAMOTRIGINE. [Suspect]
     Active Substance: LAMOTRIGINE
     Indication: BIPOLAR DISORDER
  2. TRINTELLIX [Concomitant]
     Active Substance: VORTIOXETINE HYDROBROMIDE
  3. RESTASIS [Concomitant]
     Active Substance: CYCLOSPORINE
  4. CALM [Concomitant]
     Active Substance: TRIFLUOPERAZINE HYDROCHLORIDE
  5. PRENATAL VITAMINS [Concomitant]
     Active Substance: VITAMINS
  6. TYLENOL PM [Concomitant]
     Active Substance: ACETAMINOPHEN\DIPHENHYDRAMINE

REACTIONS (7)
  - Rash pruritic [None]
  - Mucosa vesicle [None]
  - Visual impairment [None]
  - Life expectancy shortened [None]
  - Stevens-Johnson syndrome [None]
  - Blindness [None]
  - Rash [None]

NARRATIVE: CASE EVENT DATE: 20180421
